FAERS Safety Report 4804444-5 (Version None)
Quarter: 2005Q4

REPORT INFORMATION
  Report Type: 
  Country: None (occurrence: None)
  Receive Date: 20051020
  Receipt Date: 20051018
  Transmission Date: 20060501
  Serious: Yes (Death)
  Sender: FDA-Public Use
  Company Number: 419989

PATIENT
  Age: 42 Year
  Sex: Male

DRUGS (5)
  1. CARVEDILOL [Suspect]
     Dosage: 1.25MG PER DAY
     Route: 048
     Dates: start: 20040807
  2. ACECOL [Concomitant]
  3. BUFFERIN [Concomitant]
  4. LASIX [Concomitant]
  5. DIGOSIN [Concomitant]

REACTIONS (1)
  - DEATH [None]
